FAERS Safety Report 13933371 (Version 3)
Quarter: 2019Q4

REPORT INFORMATION
  Report Type: Spontaneous
  Country: IN (occurrence: IN)
  Receive Date: 20170904
  Receipt Date: 20191206
  Transmission Date: 20200122
  Serious: Yes (Other)
  Sender: FDA-Public Use
  Company Number: IN-BAUSCH-BL-2017-026208

PATIENT
  Age: 22 Year
  Sex: Male

DRUGS (22)
  1. PREDNISOLONE. [Suspect]
     Active Substance: PREDNISOLONE
     Dosage: INCREASED DOSE
     Route: 048
  2. PREDNISOLONE. [Suspect]
     Active Substance: PREDNISOLONE
     Dosage: INCREASED DOSE
     Route: 048
  3. AZATHIOPRINE. [Concomitant]
     Active Substance: AZATHIOPRINE
     Indication: TYPE 2 LEPRA REACTION
     Dosage: TAKING FOR 2 MONTHS
  4. AZATHIOPRINE. [Concomitant]
     Active Substance: AZATHIOPRINE
     Dosage: TAPERED DOSE
  5. CLOFAZIMINE [Concomitant]
     Active Substance: CLOFAZIMINE
     Indication: LEPROSY
  6. CLOFAZIMINE [Concomitant]
     Active Substance: CLOFAZIMINE
     Indication: NEUROPATHY PERIPHERAL
     Dosage: INCREASED DOSE
  7. THALIDOMIDE [Concomitant]
     Active Substance: THALIDOMIDE
     Dosage: INCREASED DOSE
  8. PREDNISOLONE. [Suspect]
     Active Substance: PREDNISOLONE
     Indication: LEPROSY
     Dosage: RESTARTED AFTER 2 MONTHS OF DISCONTINUATION
     Route: 048
  9. DAPSONE. [Concomitant]
     Active Substance: DAPSONE
     Indication: LEPROSY
  10. THALIDOMIDE [Concomitant]
     Active Substance: THALIDOMIDE
     Indication: TYPE 2 LEPRA REACTION
  11. PREDNISOLONE. [Suspect]
     Active Substance: PREDNISOLONE
     Indication: TYPE 2 LEPRA REACTION
     Route: 048
  12. PREDNISOLONE. [Suspect]
     Active Substance: PREDNISOLONE
     Indication: NEUROPATHY PERIPHERAL
     Dosage: TAPERED DOSE
     Route: 048
  13. DAPSONE. [Concomitant]
     Active Substance: DAPSONE
     Indication: NEUROPATHY PERIPHERAL
  14. RIFAMPICIN [Concomitant]
     Active Substance: RIFAMPIN
     Indication: LEPROSY
     Dosage: MONTHLY
  15. RIFAMPICIN [Concomitant]
     Active Substance: RIFAMPIN
     Indication: NEUROPATHY PERIPHERAL
  16. PREDNISOLONE. [Suspect]
     Active Substance: PREDNISOLONE
     Dosage: INCREASED DOSE
     Route: 048
  17. PREDNISOLONE. [Suspect]
     Active Substance: PREDNISOLONE
     Dosage: TAPERED DOSE
     Route: 048
  18. PREDNISOLONE. [Suspect]
     Active Substance: PREDNISOLONE
     Dosage: TAPERED DOSE
     Route: 048
  19. THALIDOMIDE [Concomitant]
     Active Substance: THALIDOMIDE
  20. PREDNISOLONE. [Suspect]
     Active Substance: PREDNISOLONE
     Route: 048
  21. THALIDOMIDE [Concomitant]
     Active Substance: THALIDOMIDE
     Dosage: DECREASED DOSE
  22. THALIDOMIDE [Concomitant]
     Active Substance: THALIDOMIDE
     Dosage: DOSE INCREASED

REACTIONS (4)
  - Type 2 lepra reaction [Unknown]
  - Cushingoid [Unknown]
  - Muscle atrophy [Unknown]
  - Steroid dependence [Unknown]
